FAERS Safety Report 9781474 (Version 1)
Quarter: 2013Q4

REPORT INFORMATION
  Report Type: Spontaneous
  Country: US (occurrence: US)
  Receive Date: 20131224
  Receipt Date: 20131224
  Transmission Date: 20140711
  Serious: No
  Sender: FDA-Public Use
  Company Number: US-BIOGENIDEC-2013BI120441

PATIENT
  Sex: Female

DRUGS (10)
  1. TECFIDERA [Suspect]
     Indication: MULTIPLE SCLEROSIS
     Route: 048
  2. TECFIDERA [Suspect]
     Indication: MULTIPLE SCLEROSIS
     Route: 048
  3. CLONAZEPAM [Concomitant]
  4. AMBIEN [Concomitant]
  5. TRAMADOL [Concomitant]
  6. ZOLOFT [Concomitant]
  7. COD LIVER [Concomitant]
  8. VITAMIN D [Concomitant]
  9. BLACK COHOSH-FLAXSEED SOY [Concomitant]
  10. VITAMIN C [Concomitant]

REACTIONS (4)
  - Abnormal dreams [Unknown]
  - Erythema [Recovered/Resolved]
  - Pruritus [Recovered/Resolved]
  - Flushing [Unknown]
